FAERS Safety Report 10512199 (Version 1)
Quarter: 2014Q4

REPORT INFORMATION
  Report Type: Spontaneous
  Country: BR (occurrence: BR)
  Receive Date: 20141010
  Receipt Date: 20141010
  Transmission Date: 20150528
  Serious: Yes (Other)
  Sender: FDA-Public Use
  Company Number: CHPA2014BR013674

PATIENT
  Age: 11 Year
  Sex: Male

DRUGS (5)
  1. AGASTEN [Suspect]
     Active Substance: CLEMASTINE FUMARATE
     Indication: ANAPHYLACTIC SHOCK
     Dosage: 5ML (LOADING DOSE), ONCE/SINGLE
     Route: 048
  2. AGASTEN [Suspect]
     Active Substance: CLEMASTINE FUMARATE
     Indication: DRUG ADMINISTERED TO PATIENT OF INAPPROPRIATE AGE
     Dosage: 3 ML, UNK
     Route: 048
  3. DESALEX [Suspect]
     Active Substance: DESLORATADINE
     Indication: URTICARIA
     Dosage: UNK
     Route: 065
     Dates: start: 2008
  4. DESALEX [Suspect]
     Active Substance: DESLORATADINE
     Indication: INJURY
  5. AGASTEN [Suspect]
     Active Substance: CLEMASTINE FUMARATE
     Indication: OFF LABEL USE
     Dosage: 10 ML, UNK
     Route: 048

REACTIONS (4)
  - Urticaria [Unknown]
  - Seizure [Unknown]
  - Tooth malformation [Recovering/Resolving]
  - Injury [Unknown]

NARRATIVE: CASE EVENT DATE: 2008
